FAERS Safety Report 8065282-6 (Version None)
Quarter: 2012Q1

REPORT INFORMATION
  Report Type: 
  Country: None (occurrence: None)
  Receive Date: 20120124
  Receipt Date: 20120118
  Transmission Date: 20120608
  Serious: Yes (Other)
  Sender: FDA-Public Use
  Company Number: US-JNJFOC-20120107530

PATIENT
  Sex: Female
  Weight: 77.11 kg

DRUGS (7)
  1. SIMPONI [Suspect]
     Route: 058
     Dates: start: 20110301, end: 20110401
  2. VITAMIN D [Concomitant]
     Route: 048
     Dates: start: 20080101
  3. ALL OTHER THERAPEUTIC PRODUCTS [Concomitant]
     Indication: SWELLING
     Route: 048
     Dates: start: 20040101
  4. SIMPONI [Suspect]
     Indication: RHEUMATOID ARTHRITIS
     Route: 058
     Dates: start: 20110701
  5. ALL OTHER THERAPEUTIC PRODUCTS [Concomitant]
     Indication: PAIN
     Route: 048
     Dates: start: 20040101
  6. ANAKINRA [Suspect]
     Indication: RHEUMATOID ARTHRITIS
     Route: 058
     Dates: start: 20110401, end: 20110501
  7. LOTREL [Concomitant]
     Indication: BLOOD PRESSURE ABNORMAL
     Dosage: 5/10 MG
     Route: 048

REACTIONS (4)
  - OSTEOPENIA [None]
  - RHEUMATOID ARTHRITIS [None]
  - SCLERITIS [None]
  - VITAMIN D ABNORMAL [None]
